FAERS Safety Report 7360353-1 (Version None)
Quarter: 2011Q1

REPORT INFORMATION
  Report Type: 
  Country: None (occurrence: None)
  Receive Date: 20110318
  Receipt Date: 20110309
  Transmission Date: 20110831
  Serious: No
  Sender: FDA-Public Use
  Company Number: US-JNJFOC-20110304776

PATIENT
  Sex: Female
  Weight: 67.13 kg

DRUGS (2)
  1. DURAGESIC-50 [Suspect]
     Indication: BONE PAIN
     Route: 062
  2. BLOOD PRESSURE MEDICATION NOS [Concomitant]
     Route: 065

REACTIONS (1)
  - INAPPROPRIATE SCHEDULE OF DRUG ADMINISTRATION [None]
